FAERS Safety Report 4878071-8 (Version None)
Quarter: 2006Q1

REPORT INFORMATION
  Report Type: 
  Country: None (occurrence: None)
  Receive Date: 20060110
  Receipt Date: 20051226
  Transmission Date: 20060701
  Serious: Yes (Death, Hospitalization)
  Sender: FDA-Public Use
  Company Number: 2005-02677

PATIENT
  Age: 72 Year
  Sex: Male

DRUGS (2)
  1. VELCADE [Suspect]
     Indication: MULTIPLE MYELOMA
     Dosage: 1.30 MG/M2, 2/WEEK, INTRAVENOUS
     Route: 042
     Dates: start: 20030707, end: 20030718
  2. BETAMETHASONE [Concomitant]

REACTIONS (13)
  - ALANINE AMINOTRANSFERASE ABNORMAL [None]
  - ASPARTATE AMINOTRANSFERASE INCREASED [None]
  - BLOOD ALBUMIN DECREASED [None]
  - CONDITION AGGRAVATED [None]
  - HAEMODIALYSIS [None]
  - HAEMOGLOBIN ABNORMAL [None]
  - HYPOTENSION [None]
  - LABILE BLOOD PRESSURE [None]
  - PLATELET DISORDER [None]
  - RENAL FAILURE ACUTE [None]
  - RESPIRATORY FAILURE [None]
  - SEPTIC SHOCK [None]
  - THERAPEUTIC RESPONSE DECREASED [None]
